FAERS Safety Report 5196417-0 (Version None)
Quarter: 2006Q4

REPORT INFORMATION
  Report Type: 
  Country: None (occurrence: None)
  Receive Date: 20061226
  Receipt Date: 20061218
  Transmission Date: 20070319
  Serious: Yes (Death, Hospitalization)
  Sender: FDA-Public Use
  Company Number: 2006002362

PATIENT
  Age: 71 Year
  Sex: Male

DRUGS (13)
  1. ERLOTINIB (TABLET) [Suspect]
     Indication: NON-SMALL CELL LUNG CANCER
     Dosage: 150 MG (QD), ORAL
     Route: 048
     Dates: start: 20060303, end: 20060413
  2. ERLOTINIB (TABLET) [Suspect]
     Indication: NON-SMALL CELL LUNG CANCER
     Dosage: 150 MG (QD), ORAL
     Route: 048
     Dates: start: 20061102, end: 20061207
  3. BEVACIZUMAB (INJECTION FOR INFUSION) [Suspect]
     Indication: NON-SMALL CELL LUNG CANCER
     Dosage: SEE IMAGE
     Route: 042
     Dates: start: 20060303, end: 20060323
  4. BEVACIZUMAB (INJECTION FOR INFUSION) [Suspect]
     Indication: NON-SMALL CELL LUNG CANCER
     Dosage: SEE IMAGE
     Route: 042
     Dates: start: 20060602, end: 20061207
  5. DOSPIR (COMBIVENT) [Concomitant]
  6. ASPIRIN [Concomitant]
  7. RAMIPRIL [Concomitant]
  8. ADALAT [Concomitant]
  9. DAFALGAN (PARACETAMOL) [Concomitant]
  10. PANTOZOL (PANTOPRAZOLE SODIUM) [Concomitant]
  11. HEPARIN [Concomitant]
  12. PASPERTIN (METOCLOPRAMIDE HYDROCHLORIDE) [Concomitant]
  13. FLU VACCINE (INFLUENZA VACCINE) [Concomitant]

REACTIONS (15)
  - ABDOMINAL DISTENSION [None]
  - ABDOMINAL PAIN [None]
  - ABNORMAL BEHAVIOUR [None]
  - AGITATION [None]
  - BACK PAIN [None]
  - BOWEL SOUNDS ABNORMAL [None]
  - CONSTIPATION [None]
  - CYANOSIS [None]
  - DYSPNOEA [None]
  - FALL [None]
  - MALIGNANT NEOPLASM PROGRESSION [None]
  - MUSCULOSKELETAL PAIN [None]
  - NON-SMALL CELL LUNG CANCER [None]
  - PLEURAL EFFUSION [None]
  - SUBILEUS [None]
